FAERS Safety Report 18278697 (Version 1)
Quarter: 2020Q3

REPORT INFORMATION
  Report Type: Report from Study
  Country: BR (occurrence: BR)
  Receive Date: 20200917
  Receipt Date: 20200917
  Transmission Date: 20201103
  Serious: Yes (Other)
  Sender: FDA-Public Use
  Company Number: BR-SHIRE-BR202029923

PATIENT

DRUGS (2)
  1. HEMO?8R [Suspect]
     Active Substance: ANTIHEMOPHILIC FACTOR, HUMAN RECOMBINANT
     Indication: FACTOR VIII DEFICIENCY
     Dosage: 1500 INTERNATIONAL UNIT, 3X A WEEK
     Route: 042
     Dates: start: 20150505, end: 201911
  2. FEIBA NF [Suspect]
     Active Substance: ANTI-INHIBITOR COAGULANT COMPLEX
     Indication: FACTOR VIII DEFICIENCY
     Dosage: 3000 INTERNATIONAL UNIT, AS REQ^D
     Route: 042
     Dates: start: 20150505

REACTIONS (2)
  - Anti factor VIII antibody increased [Recovering/Resolving]
  - Drug ineffective [Recovering/Resolving]
